FAERS Safety Report 7568186-8 (Version None)
Quarter: 2011Q2

REPORT INFORMATION
  Report Type: 
  Country: None (occurrence: None)
  Receive Date: 20110616
  Receipt Date: 20110609
  Transmission Date: 20111010
  Serious: Yes (Death, Hospitalization)
  Sender: FDA-Public Use
  Company Number: 2011SP026911

PATIENT
  Age: 82 Year
  Sex: Male

DRUGS (3)
  1. CORTICOID [Concomitant]
  2. INSULIN [Concomitant]
  3. TEMOZOLOMIDE [Suspect]
     Indication: CENTRAL NERVOUS SYSTEM LYMPHOMA

REACTIONS (12)
  - ATTENTION DEFICIT/HYPERACTIVITY DISORDER [None]
  - PHLEBITIS [None]
  - CARDIAC FAILURE [None]
  - FALL [None]
  - ABNORMAL BEHAVIOUR [None]
  - CONFUSIONAL STATE [None]
  - ERYSIPELAS [None]
  - BALANCE DISORDER [None]
  - DISORIENTATION [None]
  - CSF CELL COUNT ABNORMAL [None]
  - RENAL FAILURE [None]
  - ESCHAR [None]
